FAERS Safety Report 4964019-4 (Version None)
Quarter: 2006Q1

REPORT INFORMATION
  Report Type: 
  Country: None (occurrence: None)
  Receive Date: 20060201
  Receipt Date: 20051118
  Transmission Date: 20060701
  Serious: No
  Sender: FDA-Public Use
  Company Number: 2005PV004559

PATIENT
  Age: 76 Year
  Sex: Male
  Weight: 108.4097 kg

DRUGS (8)
  1. BYETTA [Suspect]
     Indication: DIABETES MELLITUS NON-INSULIN-DEPENDENT
     Dosage: 5 MCG; BID; SC
     Route: 058
     Dates: start: 20051112, end: 20051117
  2. GLYBURIDE [Concomitant]
  3. ACTOS ^LILLY^ [Concomitant]
  4. TOPROL-XL [Concomitant]
  5. INDAPAMIDE [Concomitant]
  6. LIPITOR [Concomitant]
  7. LISINOPRIL [Concomitant]
  8. AVAPRO [Concomitant]

REACTIONS (9)
  - ARTHRALGIA [None]
  - BACK PAIN [None]
  - DECREASED APPETITE [None]
  - HEADACHE [None]
  - MUSCULOSKELETAL PAIN [None]
  - MUSCULOSKELETAL STIFFNESS [None]
  - NECK PAIN [None]
  - SHOULDER PAIN [None]
  - WEIGHT DECREASED [None]
